FAERS Safety Report 10550870 (Version 1)
Quarter: 2014Q4

REPORT INFORMATION
  Report Type: Spontaneous
  Country: IN (occurrence: None)
  Receive Date: 20141027
  Receipt Date: 20141027
  Transmission Date: 20150529
  Serious: Yes (Hospitalization)
  Sender: FDA-Public Use
  Company Number: IN-017449

PATIENT
  Age: 29 Year
  Sex: Female

DRUGS (1)
  1. PROGESTERONE (GESTONE) [Suspect]
     Active Substance: PROGESTERONE
     Indication: ASSISTED FERTILISATION
     Route: 030
     Dates: start: 20140707, end: 20140916

REACTIONS (6)
  - Weight decreased [None]
  - Maternal exposure during pregnancy [None]
  - Blood bilirubin increased [None]
  - Jaundice [None]
  - Vomiting [None]
  - Nausea [None]
